FAERS Safety Report 15928835 (Version 3)
Quarter: 2019Q2

REPORT INFORMATION
  Report Type: Spontaneous
  Country: US (occurrence: US)
  Receive Date: 20190206
  Receipt Date: 20190415
  Transmission Date: 20190711
  Serious: Yes (Death, Other)
  Sender: FDA-Public Use
  Company Number: US-ASTRAZENECA-2018SF34805

PATIENT
  Age: 8762 Day
  Sex: Female

DRUGS (48)
  1. LASIX [Concomitant]
     Active Substance: FUROSEMIDE
  2. EFFEXOR [Concomitant]
     Active Substance: VENLAFAXINE HYDROCHLORIDE
  3. LANTUS [Concomitant]
     Active Substance: INSULIN GLARGINE
  4. ZYRTEC [Concomitant]
     Active Substance: CETIRIZINE HYDROCHLORIDE
  5. MORPHINE [Concomitant]
     Active Substance: MORPHINE
  6. ESCITALOPRAM [Concomitant]
     Active Substance: ESCITALOPRAM OXALATE
  7. METOCLOPRAMIDE. [Concomitant]
     Active Substance: METOCLOPRAMIDE
  8. IPRATROPIUM [Concomitant]
     Active Substance: IPRATROPIUM
  9. PROTONIX [Suspect]
     Active Substance: PANTOPRAZOLE SODIUM
     Route: 065
     Dates: start: 20050221, end: 20060113
  10. NEURONTIN [Concomitant]
     Active Substance: GABAPENTIN
  11. METOLAZONE. [Concomitant]
     Active Substance: METOLAZONE
  12. BIOTIN [Concomitant]
     Active Substance: BIOTIN
  13. ARIPIPRAZOLE. [Concomitant]
     Active Substance: ARIPIPRAZOLE
  14. ASPIRIN. [Concomitant]
     Active Substance: ASPIRIN
  15. ACETAMINOPHEN-CODEINE [Concomitant]
     Active Substance: ACETAMINOPHEN\CODEINE PHOSPHATE
  16. BENZONATATE. [Concomitant]
     Active Substance: BENZONATATE
  17. CETIRIZINE [Concomitant]
     Active Substance: CETIRIZINE HYDROCHLORIDE
  18. NEXIUM [Suspect]
     Active Substance: ESOMEPRAZOLE MAGNESIUM
     Route: 048
     Dates: start: 20040820
  19. BENADRYL [Concomitant]
     Active Substance: DIPHENHYDRAMINE HYDROCHLORIDE
  20. TOPAMAX [Concomitant]
     Active Substance: TOPIRAMATE
  21. NIFEDIPINE. [Concomitant]
     Active Substance: NIFEDIPINE
  22. HYDROXYZINE [Concomitant]
     Active Substance: HYDROXYZINE HYDROCHLORIDE
  23. ALBUTEROL. [Concomitant]
     Active Substance: ALBUTEROL
  24. NOVOLOG [Concomitant]
     Active Substance: INSULIN ASPART
  25. NEXIUM [Suspect]
     Active Substance: ESOMEPRAZOLE MAGNESIUM
     Route: 048
     Dates: start: 20040702, end: 20060413
  26. PREVACID [Suspect]
     Active Substance: LANSOPRAZOLE
     Route: 065
     Dates: start: 20040413, end: 20040722
  27. PROTONIX [Suspect]
     Active Substance: PANTOPRAZOLE SODIUM
     Route: 065
     Dates: start: 2004, end: 2006
  28. ZOCOR [Concomitant]
     Active Substance: SIMVASTATIN
  29. ZETIA [Concomitant]
     Active Substance: EZETIMIBE
  30. CLONIDINE. [Concomitant]
     Active Substance: CLONIDINE
  31. MAGNESIUM HYDROXIDE. [Concomitant]
     Active Substance: MAGNESIUM HYDROXIDE
  32. PROMETHAZINE [Concomitant]
     Active Substance: PROMETHAZINE\PROMETHAZINE HYDROCHLORIDE
  33. NEXIUM [Suspect]
     Active Substance: ESOMEPRAZOLE MAGNESIUM
     Route: 048
     Dates: start: 2004, end: 2006
  34. PROTONIX [Suspect]
     Active Substance: PANTOPRAZOLE SODIUM
     Route: 065
     Dates: start: 20050221
  35. COLACE [Concomitant]
     Active Substance: DOCUSATE SODIUM
  36. WARFARIN [Concomitant]
     Active Substance: WARFARIN
  37. ACYCLOVIR. [Concomitant]
     Active Substance: ACYCLOVIR
  38. PREVACID [Suspect]
     Active Substance: LANSOPRAZOLE
     Route: 065
     Dates: start: 2004, end: 2006
  39. PREVACID [Suspect]
     Active Substance: LANSOPRAZOLE
     Route: 065
     Dates: start: 20040413
  40. TRAZODONE [Concomitant]
     Active Substance: TRAZODONE HYDROCHLORIDE
  41. NITROGLYCERIN. [Concomitant]
     Active Substance: NITROGLYCERIN
  42. FLUTICASONE-SALMETEROL [Concomitant]
  43. PROCHLORPERAZINE. [Concomitant]
     Active Substance: PROCHLORPERAZINE
  44. LISINOPRIL. [Concomitant]
     Active Substance: LISINOPRIL
  45. METOPROLOL. [Concomitant]
     Active Substance: METOPROLOL
  46. LEXAPRO [Concomitant]
     Active Substance: ESCITALOPRAM OXALATE
  47. ATIVAN [Concomitant]
     Active Substance: LORAZEPAM
  48. DIPHENHYDRAMINE. [Concomitant]
     Active Substance: DIPHENHYDRAMINE

REACTIONS (6)
  - Nephrogenic anaemia [Unknown]
  - Chronic kidney disease [Unknown]
  - Acute kidney injury [Unknown]
  - End stage renal disease [Fatal]
  - Renal failure [Unknown]
  - Type 1 diabetes mellitus [Fatal]

NARRATIVE: CASE EVENT DATE: 20040419
